FAERS Safety Report 22171623 (Version 1)
Quarter: 2023Q2

REPORT INFORMATION
  Report Type: Spontaneous
  Country: SE (occurrence: SE)
  Receive Date: 20230404
  Receipt Date: 20230404
  Transmission Date: 20230721
  Serious: Yes (Hospitalization)
  Sender: FDA-Public Use
  Company Number: 23_00022846

PATIENT
  Age: 4 Year
  Sex: Female

DRUGS (4)
  1. DEXMEDETOMIDINE HYDROCHLORIDE [Suspect]
     Active Substance: DEXMEDETOMIDINE HYDROCHLORIDE
     Indication: Sedative therapy
     Dosage: STRENGTH: 100 UG/ML (3 UG/KG,1 IN 12 HR
     Route: 065
     Dates: start: 20230222, end: 20230222
  2. VALPROIC ACID [Concomitant]
     Active Substance: VALPROIC ACID
     Indication: Product used for unknown indication
     Dosage: STRENGTH: 100 MG 2 SACHETS IN THE MORNING AND 1 SACHET IN THE EVENING
     Route: 065
  3. LEVETIRACETAM [Concomitant]
     Active Substance: LEVETIRACETAM
     Indication: Product used for unknown indication
     Dosage: STRENGTH: 100 MG/ML (2 ML)
     Route: 065
  4. CLOBAZAM [Concomitant]
     Active Substance: CLOBAZAM
     Indication: Product used for unknown indication
     Dosage: STRENGTH: 10 MG (0.25 DOSAGE FORM,1 IN 8 HR)
     Route: 065

REACTIONS (2)
  - Bradycardia [Recovered/Resolved]
  - Product administered to patient of inappropriate age [Unknown]

NARRATIVE: CASE EVENT DATE: 20230222
